FAERS Safety Report 7344470-8 (Version None)
Quarter: 2011Q1

REPORT INFORMATION
  Report Type: 
  Country: None (occurrence: None)
  Receive Date: 20110310
  Receipt Date: 20110304
  Transmission Date: 20110831
  Serious: Yes (Other)
  Sender: FDA-Public Use
  Company Number: JP-GENZYME-FLUD-1000325

PATIENT
  Age: 16 Year
  Sex: Female

DRUGS (6)
  1. CYCLOSPORINE [Concomitant]
     Indication: PRODUCT USED FOR UNKNOWN INDICATION
  2. TACROLIMUS [Concomitant]
     Indication: PROPHYLAXIS AGAINST GRAFT VERSUS HOST DISEASE
     Dosage: UNK
     Route: 065
  3. AZATHIOPRINE [Concomitant]
     Indication: CHRONIC GRAFT VERSUS HOST DISEASE
     Dosage: UNK
     Route: 065
  4. FLUDARA [Suspect]
     Indication: BONE MARROW TRANSPLANT
     Dosage: UNK
     Route: 065
  5. GANCICLOVIR [Concomitant]
     Indication: PRODUCT USED FOR UNKNOWN INDICATION
  6. MELPHALAN [Suspect]
     Indication: BONE MARROW TRANSPLANT
     Dosage: UNK
     Route: 065

REACTIONS (6)
  - CHRONIC GRAFT VERSUS HOST DISEASE [None]
  - HAEMOLYTIC URAEMIC SYNDROME [None]
  - ARTERIOSCLEROSIS CORONARY ARTERY [None]
  - ACUTE MYOCARDIAL INFARCTION [None]
  - HERPES VIRUS INFECTION [None]
  - PERICARDIAL EFFUSION [None]
